FAERS Safety Report 10128734 (Version 2)
Quarter: 2014Q2

REPORT INFORMATION
  Report Type: Report from Study
  Country: US (occurrence: US)
  Receive Date: 20140428
  Receipt Date: 20140507
  Transmission Date: 20141212
  Serious: Yes (Other)
  Sender: FDA-Public Use
  Company Number: PHEH2014US008104

PATIENT
  Sex: Male

DRUGS (1)
  1. ARCAPTA [Suspect]

REACTIONS (2)
  - Emphysema [Unknown]
  - Chronic obstructive pulmonary disease [Unknown]
